FAERS Safety Report 8299473-6 (Version None)
Quarter: 2012Q2

REPORT INFORMATION
  Report Type: 
  Country: None (occurrence: None)
  Receive Date: 20120419
  Receipt Date: 20120413
  Transmission Date: 20120825
  Serious: Yes (Other)
  Sender: FDA-Public Use
  Company Number: US-BAYER-2012-037064

PATIENT
  Sex: Female

DRUGS (1)
  1. BRONKAID MIST [Suspect]
     Dosage: 1 DF, QD
     Route: 048

REACTIONS (1)
  - MYOCARDIAL INFARCTION [None]
